FAERS Safety Report 6652958-8 (Version None)
Quarter: 2010Q1

REPORT INFORMATION
  Report Type: 
  Country: None (occurrence: None)
  Receive Date: 20100326
  Receipt Date: 20100315
  Transmission Date: 20100710
  Serious: Yes (Other)
  Sender: FDA-Public Use
  Company Number: PHEH2010US03145

PATIENT

DRUGS (1)
  1. ZOMETA [Suspect]

REACTIONS (3)
  - GINGIVAL DISORDER [None]
  - LOOSE TOOTH [None]
  - TOOTH EXTRACTION [None]
